FAERS Safety Report 7633783-8 (Version None)
Quarter: 2011Q3

REPORT INFORMATION
  Report Type: 
  Country: None (occurrence: None)
  Receive Date: 20110714
  Receipt Date: 20100609
  Transmission Date: 20111222
  Serious: Yes (Hospitalization)
  Sender: FDA-Public Use
  Company Number: 2010SP032814

PATIENT
  Age: 50 Year
  Sex: Female

DRUGS (4)
  1. INTEGRILIN [Suspect]
     Indication: CORONARY ARTERIAL STENT INSERTION
     Dosage: IV
     Route: 042
  2. ASPIRIN [Concomitant]
  3. HEPARIN [Concomitant]
  4. PLAVIX [Concomitant]

REACTIONS (1)
  - GINGIVAL BLEEDING [None]
